FAERS Safety Report 9424700 (Version 2)
Quarter: 2013Q3

REPORT INFORMATION
  Report Type: Spontaneous
  Country: US (occurrence: None)
  Receive Date: 20130725
  Receipt Date: 20130813
  Transmission Date: 20140515
  Serious: No
  Sender: FDA-Public Use
  Company Number: JPI-P-033810

PATIENT
  Age: 66 Year
  Sex: Female

DRUGS (6)
  1. XYREM [Suspect]
     Indication: NARCOLEPSY
     Dosage: 4.5GM (2.25 GM, 2 IN 1 D) ORAL
     Route: 048
     Dates: start: 20070831
  2. ACETYLSALICYCLIC ACID [Concomitant]
  3. MODAFINIL [Concomitant]
  4. FLUOXETINE [Concomitant]
  5. RAMIPRIL [Concomitant]
  6. SPRIONOLACTONE [Concomitant]

REACTIONS (1)
  - No adverse event [None]
